FAERS Safety Report 12274984 (Version 1)
Quarter: 2016Q2

REPORT INFORMATION
  Report Type: Spontaneous
  Country: US (occurrence: US)
  Receive Date: 20160415
  Receipt Date: 20160415
  Transmission Date: 20160815
  Serious: No
  Sender: FDA-Public Use
  Company Number: US-ALLERGAN-1523151US

PATIENT
  Sex: Female
  Weight: 56.69 kg

DRUGS (1)
  1. LATISSE [Suspect]
     Active Substance: BIMATOPROST
     Indication: GROWTH OF EYELASHES
     Dosage: 2 GTT, QHS
     Route: 061

REACTIONS (4)
  - Blepharal pigmentation [Recovered/Resolved]
  - Inappropriate schedule of drug administration [Unknown]
  - Paraesthesia [Recovered/Resolved]
  - Drug ineffective [Unknown]
